FAERS Safety Report 17377555 (Version 11)
Quarter: 2020Q4

REPORT INFORMATION
  Report Type: Report from Study
  Country: PT (occurrence: PT)
  Receive Date: 20200206
  Receipt Date: 20201130
  Transmission Date: 20210113
  Serious: Yes (Hospitalization)
  Sender: FDA-Public Use
  Company Number: PT-ROCHE-2533306

PATIENT
  Age: 23 Year
  Sex: Female
  Weight: 63 kg

DRUGS (7)
  1. OCRELIZUMAB. [Suspect]
     Active Substance: OCRELIZUMAB
     Indication: RELAPSING-REMITTING MULTIPLE SCLEROSIS
     Dosage: DATE OF MOST RECENT DOSE OF OCRELIZUMAB PRIOR TO THIS EVENT ONSET: 21/NOV/2019?OCRELIZUMAB WILL BE A
     Route: 042
     Dates: start: 20190529
  2. METHYLPREDNISOLONE. [Concomitant]
     Active Substance: METHYLPREDNISOLONE
     Route: 042
     Dates: start: 20190606, end: 20190607
  3. DESOGESTREL AND ETHINYLESTRADIOL [Concomitant]
     Indication: CONTRACEPTION
     Dosage: 1 TABLET
     Route: 048
     Dates: end: 20200123
  4. METHYLPREDNISOLONE. [Suspect]
     Active Substance: METHYLPREDNISOLONE
     Indication: PRODUCT USED FOR UNKNOWN INDICATION
     Dosage: SUBSEQUENT DOSE ON 25/JUN/2019, 21/NOV/2019, 21/MAY/2019, 04/NOV/2020
     Route: 048
     Dates: start: 20190529
  5. HYDROXYZINE [Concomitant]
     Active Substance: HYDROXYZINE HYDROCHLORIDE
     Indication: PREMEDICATION
     Dosage: SUBSEQUENT DOSES ON 25/JUN/2019, 21/NOV/2019, 21/MAY/2019, 04/NOV/2020
     Route: 048
     Dates: start: 20190529, end: 20190529
  6. FOSFOMYCIN [Concomitant]
     Active Substance: FOSFOMYCIN
     Indication: DYSURIA
     Route: 048
     Dates: start: 20190815, end: 20190815
  7. PARACETAMOL [Concomitant]
     Active Substance: ACETAMINOPHEN
     Indication: PREMEDICATION
     Dosage: SUBSEQUENT DOSES ON 25/JUN/2019, 21/NOV/2019, 21/MAY/2019, 04/NOV/2020
     Route: 048
     Dates: start: 20190529, end: 20190529

REACTIONS (1)
  - Pulmonary embolism [Recovered/Resolved]

NARRATIVE: CASE EVENT DATE: 20200123
